FAERS Safety Report 7265070-4 (Version None)
Quarter: 2011Q1

REPORT INFORMATION
  Report Type: 
  Country: None (occurrence: None)
  Receive Date: 20110131
  Receipt Date: 20110119
  Transmission Date: 20110831
  Serious: Yes (Other)
  Sender: FDA-Public Use
  Company Number: CA-SANOFI-AVENTIS-2011SA003780

PATIENT
  Sex: Female

DRUGS (11)
  1. LANSOPRAZOLE [Concomitant]
  2. LORAZEPAM [Concomitant]
  3. BISOPROLOL [Concomitant]
  4. DIPHENHYDRAMINE HYDROCHLORIDE [Concomitant]
  5. ASA [Concomitant]
  6. TYLENOL-500 [Concomitant]
  7. VITAMIN D [Concomitant]
  8. WARFARIN [Concomitant]
  9. MULTI-VITAMINS [Concomitant]
  10. BLINDED THERAPY [Suspect]
     Route: 048
     Dates: start: 20110111, end: 20110116
  11. DRONEDARONE [Suspect]
     Route: 048
     Dates: start: 20110117, end: 20110118

REACTIONS (1)
  - CARDIAC FAILURE [None]
